FAERS Safety Report 10442665 (Version 3)
Quarter: 2014Q4

REPORT INFORMATION
  Report Type: Spontaneous
  Country: FR (occurrence: None)
  Receive Date: 20140908
  Receipt Date: 20141117
  Transmission Date: 20150528
  Serious: Yes (Disabling)
  Sender: FDA-Public Use
  Company Number: 2014-002612

PATIENT
  Age: 70 Year
  Sex: Female

DRUGS (6)
  1. EVISTA [Suspect]
     Active Substance: RALOXIFENE HYDROCHLORIDE
     Indication: OSTEOPOROSIS
     Dosage: 60 MG DAILY, ORAL
     Route: 048
  2. ACTONEL [Suspect]
     Active Substance: RISEDRONATE SODIUM
     Indication: OSTEOPOROSIS
     Dosage: 2 DOSES
     Route: 048
     Dates: start: 20090901
  3. BRIMONIDINE [Suspect]
     Active Substance: BRIMONIDINE\BRIMONIDINE TARTRATE
     Indication: OCULAR HYPERTENSION
     Dosage: 1 DROP DAILY, OPHTHALMIC
     Route: 047
     Dates: start: 20000101
  4. TIMOLOL MALEATE. [Suspect]
     Active Substance: TIMOLOL MALEATE
     Indication: OCULAR HYPERTENSION
     Dosage: 1 DROP DAILY, OPHTHALMIC
     Route: 047
     Dates: start: 19900101, end: 20000101
  5. BISOPROLOL /00802602/ (BISOPROLOL FUMARATE) [Suspect]
     Active Substance: BISOPROLOL FUMARATE
     Indication: HYPERTENSION
     Route: 048
     Dates: start: 20040830
  6. ZOFENIL /00949401/ (ZOFENOPRIL) [Suspect]
     Active Substance: ZOFENOPRIL
     Indication: HYPERTENSION
     Dates: start: 20040830

REACTIONS (3)
  - Cough [None]
  - Haemophilus test positive [None]
  - Bronchopulmonary disease [None]

NARRATIVE: CASE EVENT DATE: 201007
